FAERS Safety Report 9807673 (Version 1)
Quarter: 2014Q1

REPORT INFORMATION
  Report Type: Report from Study
  Country: US (occurrence: US)
  Receive Date: 20140110
  Receipt Date: 20140110
  Transmission Date: 20141002
  Serious: Yes (Other)
  Sender: FDA-Public Use
  Company Number: US-ROCHE-1328683

PATIENT
  Sex: Female

DRUGS (30)
  1. HERCEPTIN [Suspect]
     Indication: BREAST CANCER
     Route: 042
  2. HERCEPTIN [Suspect]
     Dosage: 21MG/ML, 140.7MG, (2MG/KG)
     Route: 042
  3. XELODA [Suspect]
     Indication: BREAST CANCER
     Route: 065
  4. KADCYLA [Suspect]
     Indication: BREAST CANCER
     Route: 042
     Dates: start: 201301
  5. KADCYLA [Suspect]
     Dosage: 20MG/ML, 207 MG AT 3 MG/KG
     Route: 042
     Dates: start: 201201
  6. KADCYLA [Suspect]
     Route: 065
     Dates: start: 20131211
  7. AMBIEN [Concomitant]
     Dosage: 1 TALET ORAL AT BEDTIME
     Route: 048
  8. BENADRYL (UNITED STATES) [Concomitant]
     Dosage: (50MG/ML) INTRAVENOUS ONCE
     Route: 042
  9. DENOSUMAB [Concomitant]
     Dosage: 70.6 MG/ML 120MG SUBCUTANEOUS ONCE
     Route: 058
  10. DEXAMETHASONE [Concomitant]
     Dosage: ORAL TAKE AS DIRECTED
     Route: 048
  11. DIPHENOXYLATE/ATROPINE [Concomitant]
     Dosage: ^2.5-0.025MG 1 TABLET ORAL 4 TIMES A DAY AS REQUIRED^
     Route: 048
  12. ESOMEPRAZOLE MAGNESIUM [Concomitant]
     Route: 065
  13. FLEXERIL (UNITED STATES) [Concomitant]
     Route: 048
  14. HYDROCODONE/ACETAMINOPHEN [Concomitant]
     Dosage: 1 TABLET ORAL Q4-6HRS.
     Route: 048
  15. OXYCODONE/ACETAMINOPHEN [Concomitant]
     Dosage: TAKE 1 TABLET ORAL Q4-6HRS PRN
     Route: 048
  16. PAROXETINE HCL [Concomitant]
     Route: 048
  17. PROCHLORPERAZINE MALEATE [Concomitant]
     Dosage: ^ONCE^
     Route: 048
  18. SOLU-MEDROL [Concomitant]
     Route: 065
  19. TAMOXIFEN CITRATE [Concomitant]
     Route: 065
  20. TAMOXIFEN CITRATE [Concomitant]
     Route: 048
  21. VINORELBINE TARTRATE [Concomitant]
     Dosage: 10MG/ML 34MG (18.75MG/M2)
     Route: 042
  22. ZITHROMAX [Concomitant]
     Dosage: TAKE AS DIRECTED
     Route: 065
  23. ZOFRAN ODT [Concomitant]
     Dosage: TAKE 8MG TABLET ORAL BID PRN
     Route: 048
  24. ZOFRAN ODT [Concomitant]
     Dosage: 1 TABLET ORAL Q4HRS PRN
     Route: 048
  25. ZOLEDRONIC ACID [Concomitant]
     Dosage: 4MG/5ML 4MG INTRAVENOUS ONCE
     Route: 042
  26. FLORINEF [Concomitant]
     Route: 048
  27. NEXIUM [Concomitant]
     Route: 048
  28. PAXIL [Concomitant]
     Route: 065
  29. REQUIP [Concomitant]
  30. TYKERB [Concomitant]

REACTIONS (6)
  - Metastatic neoplasm [Unknown]
  - Metastases to bone [Unknown]
  - Pain [Unknown]
  - Autonomic neuropathy [Unknown]
  - Iron deficiency [Recovering/Resolving]
  - Lung infiltration [Recovered/Resolved]
